FAERS Safety Report 4319637-3 (Version None)
Quarter: 2004Q1

REPORT INFORMATION
  Report Type: 
  Country: None (occurrence: None)
  Receive Date: 20040316
  Receipt Date: 20040308
  Transmission Date: 20041129
  Serious: No
  Sender: FDA-Public Use
  Company Number: DSA_60409_2004

PATIENT
  Age: 40 Year
  Sex: Female

DRUGS (1)
  1. D.H.E. 45 [Suspect]

REACTIONS (1)
  - VASCULITIS CEREBRAL [None]
